FAERS Safety Report 4735994-8 (Version None)
Quarter: 2005Q3

REPORT INFORMATION
  Report Type: 
  Country: None (occurrence: None)
  Receive Date: 20050805
  Receipt Date: 20050309
  Transmission Date: 20060218
  Serious: Yes (Hospitalization, Disabling, Other)
  Sender: FDA-Public Use
  Company Number: US-MERCK-0503USA01978

PATIENT
  Age: 77 Year
  Sex: Female
  Weight: 64 kg

DRUGS (10)
  1. VIOXX [Suspect]
     Indication: OSTEOARTHRITIS
     Route: 048
     Dates: start: 20000401, end: 20040912
  2. VIOXX [Suspect]
     Route: 048
     Dates: start: 20000401, end: 20040912
  3. PRILOSEC [Concomitant]
     Indication: DYSPEPSIA
     Route: 065
  4. LIBRIUM [Concomitant]
     Indication: ANXIETY
     Route: 065
     Dates: start: 19620101
  5. KETOPROFEN [Concomitant]
     Indication: OSTEOARTHRITIS
     Route: 065
  6. PREDNISONE [Concomitant]
     Indication: OSTEOARTHRITIS
     Route: 065
  7. PREDNISONE [Concomitant]
     Indication: HYPERSENSITIVITY
     Route: 065
  8. ACETAMINOPHEN AND HYDROCODONE BITARTRATE [Concomitant]
     Indication: OSTEOARTHRITIS
     Route: 065
  9. ACETAMINOPHEN AND HYDROCODONE BITARTRATE [Concomitant]
     Indication: PAIN
     Route: 065
  10. INDOMETHACIN [Concomitant]
     Indication: OSTEOARTHRITIS
     Route: 065

REACTIONS (7)
  - BLOOD CHOLESTEROL INCREASED [None]
  - DEPRESSION [None]
  - GALLBLADDER DISORDER [None]
  - GOUT [None]
  - HYPERTENSION [None]
  - MYOCARDIAL INFARCTION [None]
  - TRANSIENT ISCHAEMIC ATTACK [None]
